FAERS Safety Report 5848133-7 (Version None)
Quarter: 2008Q3

REPORT INFORMATION
  Report Type: 
  Country: None (occurrence: None)
  Receive Date: 20080818
  Receipt Date: 20080805
  Transmission Date: 20090109
  Serious: Yes (Hospitalization)
  Sender: FDA-Public Use
  Company Number: JP-BRISTOL-MYERS SQUIBB COMPANY-14303135

PATIENT
  Age: 69 Year
  Sex: Male

DRUGS (3)
  1. NEUROLITE [Suspect]
     Indication: CEREBRAL ARTERY EMBOLISM
     Route: 042
     Dates: start: 20080730
  2. NEUROLITE [Suspect]
     Indication: FAT EMBOLISM
     Route: 042
     Dates: start: 20080730
  3. SYMMETREL [Concomitant]

REACTIONS (1)
  - HEPATIC FUNCTION ABNORMAL [None]
